FAERS Safety Report 5056030-2 (Version None)
Quarter: 2006Q3

REPORT INFORMATION
  Report Type: 
  Country: None (occurrence: None)
  Receive Date: 20060717
  Receipt Date: 20060717
  Transmission Date: 20061208
  Serious: Yes (Other)
  Sender: FDA-Public Use
  Company Number: None

PATIENT
  Age: 67 Year
  Sex: Female

DRUGS (1)
  1. ALBUTEROL HFA  MULTIDOSE INHALER [Suspect]
     Indication: ASTHMA
     Dosage: 1 TO 2 PUFFS   PRN 4 TO 6 HOURS  PO
     Route: 048
     Dates: start: 20060707, end: 20060710

REACTIONS (6)
  - DRUG HYPERSENSITIVITY [None]
  - GLOSSITIS [None]
  - PHARMACEUTICAL PRODUCT COMPLAINT [None]
  - PHARYNGEAL OEDEMA [None]
  - SWOLLEN TONGUE [None]
  - THROAT IRRITATION [None]
